FAERS Safety Report 6905533-1 (Version None)
Quarter: 2010Q3

REPORT INFORMATION
  Report Type: 
  Country: None (occurrence: None)
  Receive Date: 20100804
  Receipt Date: 20100723
  Transmission Date: 20110219
  Serious: Yes (Other)
  Sender: FDA-Public Use
  Company Number: BR-PFIZER INC-2009296558

PATIENT
  Age: 35 Year
  Sex: Male
  Weight: 104 kg

DRUGS (10)
  1. GEODON [Suspect]
     Indication: SCHIZOPHRENIA
     Dosage: 40 MG, 2X/DAY, EVERY 12 HOURS
     Route: 048
     Dates: start: 20080101
  2. GEODON [Suspect]
     Dosage: 80 MG, 2X/DAY
     Route: 048
  3. LITHIUM CARBONATE [Suspect]
     Indication: MANIA
     Dosage: 900 MG, UNK
     Dates: start: 20100401
  4. CARBAMAZEPINE [Concomitant]
     Dosage: 400 MG, 2X/DAY, EVERY 12 HOURS
     Route: 048
     Dates: start: 20030101
  5. NEOZINE [Concomitant]
     Indication: INSOMNIA
     Dosage: 50 MG, UNK
     Dates: start: 20070101
  6. AMPLICTIL [Concomitant]
     Dosage: 25 MG, 2X/DAY
     Route: 048
     Dates: start: 20090101
  7. CLONAZEPAM [Concomitant]
     Dosage: UNK
     Dates: start: 20031101
  8. PAROXETINE [Concomitant]
     Dosage: UNK
  9. AKINETON [Concomitant]
     Indication: PARKINSON'S DISEASE
     Dosage: 4 MG, UNK
     Dates: start: 20100101
  10. SERTRALINE [Concomitant]
     Indication: DEPRESSION
     Dosage: 50 MG, UNK

REACTIONS (11)
  - AGGRESSION [None]
  - DECREASED INTEREST [None]
  - DEPRESSION [None]
  - DRUG LEVEL DECREASED [None]
  - HALLUCINATION [None]
  - MOOD ALTERED [None]
  - NECK PAIN [None]
  - PERSECUTORY DELUSION [None]
  - PSYCHOTIC DISORDER [None]
  - WEIGHT DECREASED [None]
  - WEIGHT INCREASED [None]
